FAERS Safety Report 8828162 (Version 2)
Quarter: 2012Q4

REPORT INFORMATION
  Report Type: 
  Country: JP (occurrence: JP)
  Receive Date: 20121005
  Receipt Date: 20121019
  Transmission Date: 20130627
  Serious: Yes (Other)
  Sender: FDA-Public Use
  Company Number: JP-PFIZER INC-2012245346

PATIENT
  Age: 64 Year
  Sex: Male

DRUGS (1)
  1. LYRICA [Suspect]
     Dosage: 75 mg, 1x/day
     Route: 048
     Dates: start: 20120815, end: 2012

REACTIONS (1)
  - Creatinine renal clearance decreased [Not Recovered/Not Resolved]
